FAERS Safety Report 9337433 (Version 1)
Quarter: 2013Q2

REPORT INFORMATION
  Report Type: Spontaneous
  Country: US (occurrence: US)
  Receive Date: 20130607
  Receipt Date: 20130607
  Transmission Date: 20140414
  Serious: Yes (Other)
  Sender: FDA-Public Use
  Company Number: US-SP-2013-06588

PATIENT
  Sex: 0

DRUGS (1)
  1. TUBERSOL [Suspect]
     Indication: TUBERCULIN TEST
     Route: 023

REACTIONS (2)
  - Cellulitis [Not Recovered/Not Resolved]
  - Vaccination site inflammation [Not Recovered/Not Resolved]
